FAERS Safety Report 6127460-2 (Version None)
Quarter: 2009Q1

REPORT INFORMATION
  Report Type: 
  Country: None (occurrence: None)
  Receive Date: 20090323
  Receipt Date: 20090316
  Transmission Date: 20090719
  Serious: Yes (Other)
  Sender: FDA-Public Use
  Company Number: PHEH2009US02659

PATIENT
  Age: 89 Year
  Sex: Female

DRUGS (7)
  1. EXELON [Suspect]
     Dosage: 9.5 MG, UNK
     Route: 062
  2. ATENOLOL [Concomitant]
  3. FUROSEMIDE [Concomitant]
  4. DIGOXIN [Concomitant]
  5. PLAVIX [Concomitant]
  6. VYTORIN [Concomitant]
  7. NITROFURANTOIN [Concomitant]

REACTIONS (2)
  - CEREBROVASCULAR ACCIDENT [None]
  - HYPERHIDROSIS [None]
